FAERS Safety Report 8899542 (Version 1)
Quarter: 2012Q4

REPORT INFORMATION
  Report Type: 
  Country: GB (occurrence: GB)
  Receive Date: 20121109
  Receipt Date: 20121109
  Transmission Date: 20130627
  Serious: Yes (Hospitalization, Other)
  Sender: FDA-Public Use
  Company Number: GB-PFIZER INC-2012259048

PATIENT
  Age: 35 Year
  Sex: Female
  Weight: 70 kg

DRUGS (5)
  1. LYRICA [Suspect]
     Indication: NEURALGIA
     Dosage: 150 mg, 3x/day
     Route: 048
     Dates: start: 20120730, end: 20120830
  2. BUTRANS [Concomitant]
     Indication: NEURALGIA
     Dosage: 10 ug, UNK
     Dates: start: 20120813, end: 20120830
  3. LIDOCAINE [Concomitant]
     Indication: NEURALGIA
     Dosage: UNK
     Dates: start: 20120813, end: 20120830
  4. PARACETAMOL WITH CODEINE [Concomitant]
     Indication: NEURALGIA
     Dosage: 30/500mg 4x/day
     Route: 048
     Dates: start: 20120813, end: 20120830
  5. AMITRIPTYLINE [Concomitant]
     Indication: NEURALGIA
     Dosage: 75 mg, UNK
     Route: 048
     Dates: start: 20120516, end: 20120830

REACTIONS (1)
  - Hepatic function abnormal [Recovered/Resolved]
